FAERS Safety Report 8183329-3 (Version None)
Quarter: 2012Q1

REPORT INFORMATION
  Report Type: 
  Country: None (occurrence: None)
  Receive Date: 20120305
  Receipt Date: 20120220
  Transmission Date: 20120608
  Serious: Yes (Hospitalization)
  Sender: FDA-Public Use
  Company Number: DE-MYLANLABS-2012S1003983

PATIENT
  Age: 46 Year
  Sex: Female
  Weight: 55 kg

DRUGS (2)
  1. OPIPRAMOL [Suspect]
     Indication: INTENTIONAL OVERDOSE
     Dosage: 10 TABLETS OF 50MG
     Route: 048
  2. CITALOPRAM HYDROBROMIDE [Suspect]
     Indication: INTENTIONAL OVERDOSE
     Dosage: 70 TABLETS OF 20MG
     Route: 048

REACTIONS (6)
  - SUICIDE ATTEMPT [None]
  - AGITATION [None]
  - INTENTIONAL OVERDOSE [None]
  - ELECTROCARDIOGRAM QT PROLONGED [None]
  - ATAXIA [None]
  - COGNITIVE DISORDER [None]
